FAERS Safety Report 5943839-3 (Version None)
Quarter: 2008Q4

REPORT INFORMATION
  Report Type: 
  Country: None (occurrence: None)
  Receive Date: 20081106
  Receipt Date: 20081023
  Transmission Date: 20090506
  Serious: No
  Sender: FDA-Public Use
  Company Number: JP-ELI_LILLY_AND_COMPANY-JP200811000283

PATIENT
  Age: 63 Year
  Sex: Male

DRUGS (1)
  1. CIALIS [Suspect]
     Route: 048
     Dates: start: 20071001

REACTIONS (1)
  - RETINAL HAEMORRHAGE [None]
